FAERS Safety Report 16973611 (Version 2)
Quarter: 2019Q4

REPORT INFORMATION
  Report Type: Spontaneous
  Country: US (occurrence: US)
  Receive Date: 20191030
  Receipt Date: 20191104
  Transmission Date: 20200122
  Serious: No
  Sender: FDA-Public Use
  Company Number: US-PFIZER INC-2019463395

PATIENT
  Age: 22 Year
  Sex: Female
  Weight: 67.13 kg

DRUGS (1)
  1. LIDOCAINE HCL [Suspect]
     Active Substance: LIDOCAINE HYDROCHLORIDE
     Indication: DIAGNOSTIC ASPIRATION
     Dosage: 3 ML, UNK (3 ML IM (INTRAMUSCULAR) ONCE)
     Route: 030
     Dates: start: 20191016, end: 20191016

REACTIONS (1)
  - Drug hypersensitivity [Recovering/Resolving]

NARRATIVE: CASE EVENT DATE: 20191021
